FAERS Safety Report 10921050 (Version 1)
Quarter: 2015Q1

REPORT INFORMATION
  Report Type: Report from Study
  Country: BR (occurrence: BR)
  Receive Date: 20150317
  Receipt Date: 20150317
  Transmission Date: 20150721
  Serious: Yes (Other)
  Sender: FDA-Public Use
  Company Number: BR-SA-2015SA030507

PATIENT
  Age: 66 Year
  Sex: Female

DRUGS (4)
  1. LANTUS [Suspect]
     Active Substance: INSULIN GLARGINE
     Indication: TYPE 2 DIABETES MELLITUS
     Route: 065
     Dates: start: 2013
  2. NOVORAPID [Concomitant]
     Active Substance: INSULIN ASPART
     Indication: TYPE 2 DIABETES MELLITUS
     Dates: start: 2013
  3. FORXIGA [Concomitant]
     Active Substance: DAPAGLIFLOZIN
     Dates: start: 201410
  4. CLIKSTAR [Suspect]
     Active Substance: CLIKSTAR
     Dates: start: 2013

REACTIONS (8)
  - Visual acuity reduced [Unknown]
  - Injection site pain [Recovering/Resolving]
  - Injection site inflammation [Recovering/Resolving]
  - Polyneuropathy [Not Recovered/Not Resolved]
  - Injection site discolouration [Recovering/Resolving]
  - Vision blurred [Unknown]
  - Retinopathy [Unknown]
  - Pain in extremity [Not Recovered/Not Resolved]

NARRATIVE: CASE EVENT DATE: 2014
